FAERS Safety Report 22228623 (Version 2)
Quarter: 2023Q2

REPORT INFORMATION
  Report Type: Spontaneous
  Country: FR (occurrence: FR)
  Receive Date: 20230419
  Receipt Date: 20230503
  Transmission Date: 20230721
  Serious: Yes (Life-Threatening)
  Sender: FDA-Public Use
  Company Number: None

PATIENT
  Age: 30 Year
  Sex: Female

DRUGS (7)
  1. ROCURONIUM BROMIDE [Suspect]
     Active Substance: ROCURONIUM BROMIDE
     Indication: Anaesthesia
     Dosage: UNK
     Route: 042
     Dates: start: 20221230
  2. METRONIDAZOLE [Suspect]
     Active Substance: METRONIDAZOLE
     Indication: Anaesthesia
     Dosage: UNK
     Route: 042
     Dates: start: 20221230
  3. NOREPINEPHRINE [Suspect]
     Active Substance: NOREPINEPHRINE
     Indication: Anaesthesia
     Dosage: UNK
     Route: 042
     Dates: start: 20221230
  4. SUGAMMADEX SODIUM [Suspect]
     Active Substance: SUGAMMADEX SODIUM
     Indication: Anaesthesia
     Dosage: 200 MG
     Route: 042
     Dates: start: 20221230
  5. REMIFENTANIL HYDROCHLORIDE [Suspect]
     Active Substance: REMIFENTANIL HYDROCHLORIDE
     Indication: Anaesthesia
     Dosage: UNK
     Route: 042
     Dates: start: 20221230
  6. PROPOFOL [Suspect]
     Active Substance: PROPOFOL
     Indication: Anaesthesia
     Dosage: UNK
     Route: 042
     Dates: start: 20221230
  7. CEFOXITIN [Suspect]
     Active Substance: CEFOXITIN SODIUM
     Indication: Anaesthesia
     Dosage: UNK
     Route: 042
     Dates: start: 20221230

REACTIONS (2)
  - Haemodynamic instability [Recovered/Resolved]
  - Rash maculo-papular [Recovered/Resolved]

NARRATIVE: CASE EVENT DATE: 20221230
